FAERS Safety Report 22011461 (Version 2)
Quarter: 2023Q1

REPORT INFORMATION
  Report Type: Spontaneous
  Country: GB (occurrence: GB)
  Receive Date: 20230220
  Receipt Date: 20230301
  Transmission Date: 20230418
  Serious: Yes (Disabling, Other)
  Sender: FDA-Public Use
  Company Number: None

PATIENT
  Age: 65 Year
  Sex: Male
  Weight: 80 kg

DRUGS (8)
  1. CIPROFLOXACIN [Suspect]
     Active Substance: CIPROFLOXACIN
     Dosage: UNK
  2. OFLOXACIN [Suspect]
     Active Substance: OFLOXACIN
     Indication: Orchitis
     Dosage: 400MG X 2 DAILY REDUCED TO 200MG X 2 DAILY FROM 13APR21
     Route: 048
     Dates: start: 20210406, end: 20210413
  3. OFLOXACIN [Suspect]
     Active Substance: OFLOXACIN
     Dosage: 200 MG, 2X/DAY
     Dates: start: 20210413, end: 20210420
  4. ASPIRIN [Concomitant]
     Active Substance: ASPIRIN
     Dosage: UNK
  5. ATORVASTATIN [Concomitant]
     Active Substance: ATORVASTATIN
     Dosage: UNK
  6. COCODAMOL [Concomitant]
     Active Substance: ACETAMINOPHEN\CODEINE PHOSPHATE
     Dosage: UNK
  7. GABAPENTIN [Concomitant]
     Active Substance: GABAPENTIN
     Dosage: UNK
  8. TAMSULOSIN [Concomitant]
     Active Substance: TAMSULOSIN
     Dosage: UNK

REACTIONS (11)
  - Pain in extremity [Not Recovered/Not Resolved]
  - Tendon pain [Not Recovered/Not Resolved]
  - Testicular pain [Not Recovered/Not Resolved]
  - Arthralgia [Not Recovered/Not Resolved]
  - Peripheral swelling [Unknown]
  - Condition aggravated [Unknown]
  - Muscle spasms [Unknown]
  - Arteriosclerosis coronary artery [Unknown]
  - Gait disturbance [Unknown]
  - Dysstasia [Unknown]
  - Depression [Unknown]

NARRATIVE: CASE EVENT DATE: 20210410
